FAERS Safety Report 4493583-7 (Version None)
Quarter: 2004Q3

REPORT INFORMATION
  Report Type: 
  Country: None (occurrence: None)
  Receive Date: 20040921
  Receipt Date: 20040122
  Transmission Date: 20050211
  Serious: Yes (Hospitalization)
  Sender: FDA-Public Use
  Company Number: 163-20785-04010604

PATIENT
  Age: 49 Year
  Sex: Male
  Weight: 131.0895 kg

DRUGS (10)
  1. THALOMID [Suspect]
     Indication: HEPATIC NEOPLASM MALIGNANT
     Dosage: 200 MG, DAILY, ORAL
     Route: 048
     Dates: start: 20030916, end: 20040309
  2. EPIRUBICIN [Suspect]
     Indication: HEPATIC NEOPLASM MALIGNANT
     Dosage: 15 MG/M2, WEEKLY, INTRAVENOUS
     Route: 042
     Dates: start: 20030916, end: 20040309
  3. HYOSCYAMINE (HYOSCYAMINE) [Concomitant]
  4. LISINOPRIL [Concomitant]
  5. KCL (POTASSIUM CHLORIDE) [Concomitant]
  6. LASIX [Concomitant]
  7. PROZAC [Concomitant]
  8. RISPERDAL [Concomitant]
  9. ARANESP [Concomitant]
  10. FENTANYL [Concomitant]

REACTIONS (4)
  - ABDOMINAL PAIN [None]
  - DIARRHOEA [None]
  - FALL [None]
  - INJECTION SITE REACTION [None]
